FAERS Safety Report 8124207-5 (Version None)
Quarter: 2012Q1

REPORT INFORMATION
  Report Type: 
  Country: None (occurrence: None)
  Receive Date: 20120209
  Receipt Date: 20120207
  Transmission Date: 20120608
  Serious: Yes (Death, Hospitalization)
  Sender: FDA-Public Use
  Company Number: US-BRISTOL-MYERS SQUIBB COMPANY-12786430

PATIENT
  Age: 61 Year
  Sex: Male
  Weight: 89 kg

DRUGS (15)
  1. LAXATIVES [Concomitant]
  2. LORTAB [Concomitant]
  3. PHENERGAN [Concomitant]
  4. SYNTHROID [Concomitant]
  5. ERBITUX [Suspect]
     Indication: NON-SMALL CELL LUNG CANCER
     Dosage: 12 COURSES TO DATE THIS COURSE=6122MG. LAST DOSE ON 02NOV04.
     Route: 042
     Dates: start: 20040913
  6. DELSYM [Concomitant]
  7. CARBOPLATIN [Suspect]
     Indication: NON-SMALL CELL LUNG CANCER
     Dosage: 12 COURSES TO DATE, LAST DOSE ON 02NOV2004
     Route: 042
     Dates: start: 20040913
  8. TAXOL [Suspect]
     Indication: NON-SMALL CELL LUNG CANCER
     Dosage: 12 COURSES TO DATE, LAST DOSE ON 02NOV2004
     Route: 042
     Dates: start: 20040913
  9. REGLAN [Concomitant]
  10. VIAGRA [Concomitant]
  11. CLEOCIN T [Concomitant]
  12. CARAFATE [Concomitant]
  13. ASCORBIC ACID [Concomitant]
  14. CALCIUM [Concomitant]
  15. VITAMIN B COMPLEX CAP [Concomitant]

REACTIONS (7)
  - COUGH [None]
  - GENERAL PHYSICAL HEALTH DETERIORATION [None]
  - INTERSTITIAL LUNG DISEASE [None]
  - BLOOD ALKALINE PHOSPHATASE INCREASED [None]
  - HYPOXIA [None]
  - DYSPNOEA [None]
  - ATYPICAL MYCOBACTERIUM TEST POSITIVE [None]
